FAERS Safety Report 10522698 (Version 1)
Quarter: 2014Q4

REPORT INFORMATION
  Report Type: Spontaneous
  Country: FR (occurrence: None)
  Receive Date: 20141014
  Receipt Date: 20141014
  Transmission Date: 20150528
  Serious: Yes (Hospitalization)
  Sender: FDA-Public Use
  Company Number: B1032632A

PATIENT
  Age: 45 Year
  Sex: Female

DRUGS (5)
  1. ALPRAZOLAM. [Suspect]
     Active Substance: ALPRAZOLAM
     Indication: PRODUCT USED FOR UNKNOWN INDICATION
     Dosage: 50 TABLET / SINGLE DOSE
     Dates: start: 20140714, end: 20140714
  2. PAROXETINE HYDROCHLORIDE TABLET (PAROXETINE HYDROCHLORIDE) [Suspect]
     Active Substance: PAROXETINE HYDROCHLORIDE
     Indication: PRODUCT USED FOR UNKNOWN INDICATION
     Dosage: 14 TABLET / SINGLE DOSE
     Dates: start: 20140714, end: 20140714
  3. PARACETAMOL [Suspect]
     Active Substance: ACETAMINOPHEN
     Indication: PRODUCT USED FOR UNKNOWN INDICATION
     Dosage: SINGLE DOSE
     Route: 048
     Dates: start: 20140714, end: 20140714
  4. AMITRIPTYLINE HCL [Suspect]
     Active Substance: AMITRIPTYLINE
     Indication: PRODUCT USED FOR UNKNOWN INDICATION
     Dosage: 90 TABLET / SINGLE DOSE
     Dates: start: 20140714, end: 20140714
  5. TRAMADOL HYDROCHLORIDE. [Suspect]
     Active Substance: TRAMADOL HYDROCHLORIDE
     Dosage: SINGLE DOSE
     Route: 048
     Dates: start: 20140714, end: 20140714

REACTIONS (13)
  - Loss of consciousness [None]
  - Mydriasis [None]
  - Confusional state [None]
  - Increased bronchial secretion [None]
  - Myoclonus [None]
  - Toxicity to various agents [None]
  - Intentional overdose [None]
  - Cardiac arrest [None]
  - Anticholinergic syndrome [None]
  - Coma [None]
  - Electrocardiogram QRS complex prolonged [None]
  - Electrocardiogram QT shortened [None]
  - Lung disorder [None]

NARRATIVE: CASE EVENT DATE: 20140714
